FAERS Safety Report 21678306 (Version 1)
Quarter: 2022Q4

REPORT INFORMATION
  Report Type: Spontaneous
  Country: FR (occurrence: FR)
  Receive Date: 20221203
  Receipt Date: 20221203
  Transmission Date: 20230113
  Serious: Yes (Hospitalization)
  Sender: FDA-Public Use
  Company Number: None

PATIENT
  Age: 55 Year
  Sex: Male

DRUGS (6)
  1. PAROXETINE [Suspect]
     Active Substance: PAROXETINE
     Indication: Intentional overdose
     Dosage: UNIT DOSE : 40 MG , DURATION : 1 DAY
     Dates: start: 20221004, end: 20221004
  2. VALPROIC ACID [Suspect]
     Active Substance: VALPROIC ACID
     Indication: Intentional overdose
     Dosage: ACIDE VALPROIQUE , UNIT DOSE : 1000 MG  , DURATION : 1 DAY
     Dates: start: 20221004, end: 20221004
  3. QUETIAPINE [Suspect]
     Active Substance: QUETIAPINE
     Indication: Intentional overdose
     Dosage: UNIT DOSE : 400 MG , DURATION : 1 DAY
     Dates: start: 20221004, end: 20221004
  4. CYAMEMAZINE [Suspect]
     Active Substance: CYAMEMAZINE
     Indication: Intentional overdose
     Dosage: UNIT DOSE : 25 MG , DURATION : 1 DAY
     Dates: start: 20221004, end: 20221004
  5. OXAZEPAM [Suspect]
     Active Substance: OXAZEPAM
     Indication: Intentional overdose
     Dosage: UNIT DOSE : 200 MG , DURATION : 1 DAY
     Dates: start: 20221004, end: 20221004
  6. METHADONE [Suspect]
     Active Substance: METHADONE HYDROCHLORIDE
     Indication: Intentional overdose
     Dosage: UNIT DOSE : 30 MG , DURATION : 1 DAY
     Dates: start: 20221004, end: 20221004

REACTIONS (4)
  - Hypotension [Recovered/Resolved]
  - Coma [Recovered/Resolved]
  - Somnolence [Recovered/Resolved]
  - Poisoning deliberate [Recovered/Resolved]

NARRATIVE: CASE EVENT DATE: 20221004
